FAERS Safety Report 22010419 (Version 2)
Quarter: 2023Q1

REPORT INFORMATION
  Report Type: Spontaneous
  Country: CN (occurrence: CN)
  Receive Date: 20230220
  Receipt Date: 20230322
  Transmission Date: 20230418
  Serious: Yes (Other)
  Sender: FDA-Public Use
  Company Number: CN-SUN PHARMACEUTICAL INDUSTRIES LTD-2023R1-379315

PATIENT
  Age: 67 Year
  Sex: Female

DRUGS (6)
  1. CAPECITABINE [Suspect]
     Active Substance: CAPECITABINE
     Indication: Metastasis
     Dosage: 1000 MILLIGRAM/SQ. METER, BID D1-14, Q3W
     Route: 048
     Dates: start: 202005
  2. CAPECITABINE [Suspect]
     Active Substance: CAPECITABINE
     Indication: Lymphadenopathy
  3. UNSPECIFIED INGREDIENT [Suspect]
     Active Substance: UNSPECIFIED INGREDIENT
     Indication: Metastasis
     Dosage: UNK
     Route: 065
     Dates: start: 202005
  4. UNSPECIFIED INGREDIENT [Suspect]
     Active Substance: UNSPECIFIED INGREDIENT
     Indication: Lymphadenopathy
  5. PYROTINIB [Suspect]
     Active Substance: PYROTINIB
     Indication: Metastasis
     Dosage: 400 MILLIGRAM, QD Q3W
     Route: 065
     Dates: start: 202005
  6. PYROTINIB [Suspect]
     Active Substance: PYROTINIB
     Indication: Lymphadenopathy

REACTIONS (3)
  - Drug ineffective [Unknown]
  - Metastasis [Recovered/Resolved]
  - Diarrhoea [Not Recovered/Not Resolved]

NARRATIVE: CASE EVENT DATE: 20201201
